FAERS Safety Report 24397460 (Version 1)
Quarter: 2024Q4

REPORT INFORMATION
  Report Type: Spontaneous
  Country: US (occurrence: US)
  Receive Date: 20241004
  Receipt Date: 20241004
  Transmission Date: 20250114
  Serious: Yes (Death, Hospitalization, Other)
  Sender: DR REDDYS
  Company Number: US-DRL-USA-LIT/USA/24/0014495

PATIENT
  Age: 32 Year
  Sex: Male

DRUGS (7)
  1. FLUCONAZOLE [Suspect]
     Active Substance: FLUCONAZOLE
     Indication: Cryptococcosis
  2. FLUCONAZOLE [Suspect]
     Active Substance: FLUCONAZOLE
     Indication: Cerebral fungal infection
  3. VORICONAZOLE [Concomitant]
     Active Substance: VORICONAZOLE
     Indication: Cryptococcosis
  4. VORICONAZOLE [Concomitant]
     Active Substance: VORICONAZOLE
     Indication: Cerebral fungal infection
  5. METHOTREXATE [Concomitant]
     Active Substance: METHOTREXATE
     Indication: Metastases to meninges
     Route: 037
  6. AMPHOTERICIN B [Concomitant]
     Active Substance: AMPHOTERICIN B
     Indication: Metastases to meninges
  7. FLUCYTOSINE [Concomitant]
     Active Substance: FLUCYTOSINE
     Indication: Metastases to meninges

REACTIONS (3)
  - Cardio-respiratory arrest [Fatal]
  - Brain injury [Fatal]
  - Treatment failure [Fatal]
